FAERS Safety Report 9124693 (Version 1)
Quarter: 2013Q1

REPORT INFORMATION
  Report Type: Spontaneous
  Country: BR (occurrence: BR)
  Receive Date: 20130116
  Receipt Date: 20130116
  Transmission Date: 20140127
  Serious: Yes (Other)
  Sender: FDA-Public Use
  Company Number: PHHY2013BR003671

PATIENT
  Age: 40 Year
  Sex: Male
  Weight: 55 kg

DRUGS (1)
  1. VOLTAREN [Suspect]
     Indication: INTERVERTEBRAL DISC PROTRUSION
     Dosage: 3 ML, QOD
     Route: 030
     Dates: end: 20130110

REACTIONS (8)
  - Hypokinesia [Not Recovered/Not Resolved]
  - Arrhythmia [Recovered/Resolved]
  - Sinusitis [Unknown]
  - Pain [Not Recovered/Not Resolved]
  - Pain in extremity [Unknown]
  - Injection site pain [Recovered/Resolved]
  - Injection site haemorrhage [Not Recovered/Not Resolved]
  - Injection site discolouration [Not Recovered/Not Resolved]
